FAERS Safety Report 6399083-1 (Version None)
Quarter: 2009Q4

REPORT INFORMATION
  Report Type: 
  Country: None (occurrence: None)
  Receive Date: 20091008
  Receipt Date: 20090924
  Transmission Date: 20100525
  Serious: Yes (Hospitalization)
  Sender: FDA-Public Use
  Company Number: SPV1-2008-01905

PATIENT
  Age: 28 Year
  Sex: Female
  Weight: 59 kg

DRUGS (6)
  1. CARBATROL [Suspect]
     Indication: CONVULSION
  2. REBIF [Suspect]
     Indication: MULTIPLE SCLEROSIS
     Dosage: 44 UG, 3X/WEEK, SUBCUTANEOUS
     Route: 058
     Dates: start: 20061117, end: 20070901
  3. REBIF [Suspect]
     Indication: MULTIPLE SCLEROSIS
     Dosage: 44 UG, 3X/WEEK, SUBCUTANEOUS
     Route: 058
     Dates: start: 20080201
  4. KEPPRA [Suspect]
     Indication: CONVULSION
  5. PROVIGIL [Suspect]
     Indication: FATIGUE
  6. 8IBUPROFEN (IBUPROFEN) [Concomitant]

REACTIONS (6)
  - CONDITION AGGRAVATED [None]
  - DEPRESSION [None]
  - MARITAL PROBLEM [None]
  - MULTIPLE DRUG OVERDOSE INTENTIONAL [None]
  - STRESS [None]
  - SUICIDE ATTEMPT [None]
